FAERS Safety Report 9150433 (Version 3)
Quarter: 2013Q1

REPORT INFORMATION
  Report Type: Spontaneous
  Country: US (occurrence: None)
  Receive Date: 20130219
  Receipt Date: 20130227
  Transmission Date: 20140127
  Serious: Yes (Hospitalization)
  Sender: FDA-Public Use
  Company Number: 2013US001059

PATIENT
  Age: 46 Year
  Sex: Male
  Weight: 73 kg

DRUGS (10)
  1. ICLUSIG [Suspect]
     Indication: ACUTE MYELOID LEUKAEMIA
     Route: 048
     Dates: start: 20121220, end: 20130125
  2. PREDNISONE [Concomitant]
  3. DILAUDID (HYDROMORPHONE HYDROCHLORIDE) [Concomitant]
  4. URSODIOL (URSODIOL) [Concomitant]
  5. OMEPRAZOLE (OMEPRAZOLE) [Concomitant]
  6. MICAFUNGIN (MICAFUNGIN) [Concomitant]
  7. VANCOMYCIN (VANCOMYCIN) [Concomitant]
  8. TACROLIMUS (TACROLIMUS) [Concomitant]
  9. DECLOMYCIN (DEMECLOCYCLINE HYDROCHLORIDE) [Concomitant]
  10. BUDESONIDE (BUDESONIDE) [Concomitant]

REACTIONS (7)
  - Constipation [None]
  - Abdominal pain upper [None]
  - Liver function test abnormal [None]
  - Abdominal pain [None]
  - Cytomegalovirus infection [None]
  - Haemorrhoidal haemorrhage [None]
  - Blood bilirubin increased [None]
